FAERS Safety Report 15391586 (Version 2)
Quarter: 2018Q4

REPORT INFORMATION
  Report Type: Spontaneous
  Country: DE (occurrence: DE)
  Receive Date: 20180917
  Receipt Date: 20181001
  Transmission Date: 20190204
  Serious: Yes (Congenital Anomaly)
  Sender: FDA-Public Use
  Company Number: PHHY2018DE094154

PATIENT
  Sex: Male

DRUGS (3)
  1. METHYLDOPA. [Suspect]
     Active Substance: METHYLDOPA
     Indication: FOETAL EXPOSURE DURING PREGNANCY
     Dosage: UNK
     Route: 064
  2. HYDROCHLOROTHIAZIDE. [Suspect]
     Active Substance: HYDROCHLOROTHIAZIDE
     Indication: FOETAL EXPOSURE DURING PREGNANCY
     Dosage: UNK
     Route: 064
  3. CANDESARTAN CILEXETIL. [Suspect]
     Active Substance: CANDESARTAN CILEXETIL
     Indication: FOETAL EXPOSURE DURING PREGNANCY
     Dosage: UNK (MATERNAL DOSE: 8MG)
     Route: 064

REACTIONS (6)
  - Foetal exposure during pregnancy [Unknown]
  - Congenital hydronephrosis [Unknown]
  - Congenital central nervous system anomaly [Unknown]
  - Ureteric stenosis [Unknown]
  - Accidental exposure to product [Unknown]
  - Congenital vesicoureteric reflux [Unknown]
